FAERS Safety Report 9146941 (Version 1)
Quarter: 2013Q1

REPORT INFORMATION
  Report Type: Report from Study
  Country: FR (occurrence: FR)
  Receive Date: 20130307
  Receipt Date: 20130307
  Transmission Date: 20140127
  Serious: Yes (Death, Other)
  Sender: FDA-Public Use
  Company Number: FR-GENZYME-CLOF-1002544

PATIENT
  Age: 46 Year
  Sex: Male

DRUGS (7)
  1. EVOLTRA [Suspect]
     Indication: ACUTE MYELOID LEUKAEMIA
     Dosage: UNK
     Route: 065
     Dates: start: 20100910
  2. EVOLTRA [Suspect]
     Indication: BONE MARROW CONDITIONING REGIMEN
  3. THYMOGLOBULINE [Suspect]
     Indication: BONE MARROW CONDITIONING REGIMEN
     Dosage: UNK
     Route: 065
  4. ARACYTINE [Suspect]
     Indication: ACUTE MYELOID LEUKAEMIA
     Dosage: UNK
     Route: 065
  5. ARACYTINE [Suspect]
     Indication: BONE MARROW CONDITIONING REGIMEN
  6. ENDOXAN [Suspect]
     Indication: BONE MARROW CONDITIONING REGIMEN
     Dosage: UNK
     Route: 065
  7. BUSILVEX [Suspect]
     Indication: BONE MARROW CONDITIONING REGIMEN
     Dosage: UNK
     Route: 065

REACTIONS (4)
  - Graft complication [Unknown]
  - Bone marrow failure [Unknown]
  - Aspergillus infection [Unknown]
  - Acute myeloid leukaemia [Fatal]
